FAERS Safety Report 24888797 (Version 1)
Quarter: 2025Q1

REPORT INFORMATION
  Report Type: Spontaneous
  Country: US (occurrence: None)
  Receive Date: 20250124
  Receipt Date: 20250124
  Transmission Date: 20250409
  Serious: Yes (Hospitalization)
  Sender: FDA-CTU
  Company Number: None

PATIENT
  Age: 58 Year
  Sex: Female

DRUGS (2)
  1. MOUNJARO [Suspect]
     Active Substance: TIRZEPATIDE
     Indication: Type 2 diabetes mellitus
     Dosage: 7.5MG WEEKLY
  2. MOUNJARO [Suspect]
     Active Substance: TIRZEPATIDE
     Indication: Neuropathy peripheral

REACTIONS (2)
  - Nausea [None]
  - Dyspnoea [None]
